FAERS Safety Report 25034128 (Version 2)
Quarter: 2025Q1

REPORT INFORMATION
  Report Type: Spontaneous
  Country: GB (occurrence: GB)
  Receive Date: 20250304
  Receipt Date: 20250331
  Transmission Date: 20250408
  Serious: Yes (Other)
  Sender: ALEXION PHARMACEUTICALS
  Company Number: GB-AstraZeneca-CH-00814077A

PATIENT
  Age: 52 Year
  Weight: 96.3 kg

DRUGS (1)
  1. IMFINZI [Suspect]
     Active Substance: DURVALUMAB
     Indication: Cholangiocarcinoma
     Dosage: 1500 MILLIGRAM, Q4W

REACTIONS (3)
  - Neuropathy peripheral [Recovered/Resolved]
  - Peripheral swelling [Unknown]
  - Musculoskeletal discomfort [Unknown]
